FAERS Safety Report 11269950 (Version 1)
Quarter: 2015Q3

REPORT INFORMATION
  Report Type: Spontaneous
  Country: US (occurrence: None)
  Receive Date: 20150713
  Receipt Date: 20150713
  Transmission Date: 20151125
  Serious: No
  Sender: FDA-Public Use
  Company Number: None

PATIENT
  Age: 87 Year
  Sex: Female
  Weight: 35.83 kg

DRUGS (11)
  1. CRESTOR [Concomitant]
     Active Substance: ROSUVASTATIN CALCIUM
  2. GABAPENTIN. [Concomitant]
     Active Substance: GABAPENTIN
  3. VITAMIN C [Concomitant]
     Active Substance: ASCORBIC ACID
  4. COUMADIN [Concomitant]
     Active Substance: WARFARIN SODIUM
  5. SYNTHROID [Concomitant]
     Active Substance: LEVOTHYROXINE SODIUM
  6. VITAMIN B COMPLEX [Concomitant]
     Active Substance: CYANOCOBALAMIN\DEXPANTHENOL\NIACINAMIDE\PYRIDOXINE HYDROCHLORIDE\RIBOFLAVIN 5^-PHOSPHATE SODIUM\THIAMINE HYDROCHLORIDE\VITAMIN B COMPLEX
  7. TURMERIK [Concomitant]
  8. OMEGA 3 [Concomitant]
     Active Substance: OMEGA-3 FATTY ACIDS
  9. DOLOGESIC [Suspect]
     Active Substance: ACETAMINOPHEN\ALCOHOL\PHENYLTOLOXAMINE CITRATE
     Indication: PAIN
     Route: 048
     Dates: start: 20150709, end: 20150710
  10. VITAMIN D [Concomitant]
     Active Substance: CHOLECALCIFEROL
  11. TRUNATURE PROBIOTICS [Concomitant]

REACTIONS (4)
  - Vomiting [None]
  - Drug dispensing error [None]
  - Nausea [None]
  - Wrong drug administered [None]

NARRATIVE: CASE EVENT DATE: 20150709
